FAERS Safety Report 8645077 (Version 3)
Quarter: 2013Q3

REPORT INFORMATION
  Report Type: Report from Study
  Country: US (occurrence: US)
  Receive Date: 20120702
  Receipt Date: 20130705
  Transmission Date: 20140515
  Serious: No
  Sender: FDA-Public Use
  Company Number: PHEH2012US012871

PATIENT
  Age: 66 Year
  Sex: Female

DRUGS (6)
  1. TASIGNA [Suspect]
     Indication: CHRONIC MYELOID LEUKAEMIA
     Dosage: 400 MG, BID
     Route: 048
     Dates: start: 20120426, end: 20120625
  2. TASIGNA [Suspect]
     Dosage: 400 MG, DAILY
     Route: 048
     Dates: start: 20120627
  3. LEXAPRO [Concomitant]
  4. LIPITOR [Concomitant]
  5. GLIPIZIDE [Concomitant]
  6. JANUMET [Concomitant]

REACTIONS (4)
  - Fatigue [Unknown]
  - Rash generalised [Unknown]
  - Dizziness [Unknown]
  - Nausea [Unknown]
